FAERS Safety Report 12838595 (Version 1)
Quarter: 2016Q4

REPORT INFORMATION
  Report Type: Spontaneous
  Country: US (occurrence: US)
  Receive Date: 20161012
  Receipt Date: 20161012
  Transmission Date: 20170207
  Serious: No
  Sender: FDA-Public Use
  Company Number: US-ASTRAZENECA-2016SF00313

PATIENT
  Age: 66 Year
  Sex: Female

DRUGS (2)
  1. PRILOSEC OTC [Suspect]
     Active Substance: OMEPRAZOLE MAGNESIUM
     Indication: GASTROOESOPHAGEAL REFLUX DISEASE
     Dosage: 2 IN THE MORNING AND 1 AT NIGHT, ONE DAY ONLY
     Route: 048
  2. PRILOSEC [Suspect]
     Active Substance: OMEPRAZOLE MAGNESIUM
     Route: 048

REACTIONS (4)
  - Insomnia [Unknown]
  - Dysphagia [Unknown]
  - Dyspnoea [Unknown]
  - Dry mouth [Unknown]
